FAERS Safety Report 13615720 (Version 1)
Quarter: 2017Q2

REPORT INFORMATION
  Report Type: Spontaneous
  Country: US (occurrence: US)
  Receive Date: 20170605
  Receipt Date: 20170605
  Transmission Date: 20170830
  Serious: Yes (Hospitalization)
  Sender: FDA-Public Use
  Company Number: None

PATIENT
  Age: 67 Year
  Sex: Male

DRUGS (1)
  1. APIXABAN [Suspect]
     Active Substance: APIXABAN
     Indication: ATRIAL FIBRILLATION
     Dates: start: 20170315

REACTIONS (4)
  - Gastric haemorrhage [None]
  - Haematochezia [None]
  - Varices oesophageal [None]
  - Polyp [None]

NARRATIVE: CASE EVENT DATE: 20170327
